FAERS Safety Report 6498202-6 (Version None)
Quarter: 2009Q4

REPORT INFORMATION
  Report Type: 
  Country: None (occurrence: None)
  Receive Date: 20091215
  Receipt Date: 20091208
  Transmission Date: 20100525
  Serious: Yes (Other)
  Sender: FDA-Public Use
  Company Number: A0834133A

PATIENT
  Sex: Male

DRUGS (3)
  1. PAXIL [Suspect]
     Indication: DEPRESSION
     Route: 048
     Dates: start: 20040101
  2. PAROXETINE HCL [Suspect]
     Indication: DEPRESSION
     Dosage: 20MG PER DAY
     Route: 048
     Dates: start: 20040101
  3. ALCOHOL [Suspect]
     Route: 048

REACTIONS (3)
  - ALCOHOL POISONING [None]
  - ALCOHOLISM [None]
  - LOSS OF CONSCIOUSNESS [None]
